FAERS Safety Report 14940677 (Version 5)
Quarter: 2018Q4

REPORT INFORMATION
  Report Type: Report from Study
  Country: US (occurrence: US)
  Receive Date: 20180525
  Receipt Date: 20181102
  Transmission Date: 20190204
  Serious: Yes (Death, Hospitalization)
  Sender: FDA-Public Use
  Company Number: US-ACTELION-A-US2017-165125

PATIENT
  Age: 72 Year
  Sex: Male
  Weight: 111.11 kg

DRUGS (5)
  1. ADCIRCA [Concomitant]
     Active Substance: TADALAFIL
  2. DILTIAZEM. [Concomitant]
     Active Substance: DILTIAZEM
  3. VENTAVIS [Suspect]
     Active Substance: ILOPROST
     Indication: PULMONARY ARTERIAL HYPERTENSION
     Dosage: 5 MCG, 6 TO 9 TIMES DAILY
     Route: 055
  4. OXYGEN. [Concomitant]
     Active Substance: OXYGEN
     Dosage: 10 L, UNK
  5. OPSUMIT [Suspect]
     Active Substance: MACITENTAN
     Indication: PULMONARY ARTERIAL HYPERTENSION
     Route: 048

REACTIONS (6)
  - Malaise [Recovering/Resolving]
  - Heart rate increased [Unknown]
  - Death [Fatal]
  - Oxygen saturation decreased [Unknown]
  - Product dose omission [Recovering/Resolving]
  - Atrial fibrillation [Unknown]

NARRATIVE: CASE EVENT DATE: 20180710
